FAERS Safety Report 5551628-7 (Version None)
Quarter: 2007Q4

REPORT INFORMATION
  Report Type: 
  Country: None (occurrence: None)
  Receive Date: 20071129
  Receipt Date: 20070523
  Transmission Date: 20080405
  Serious: Yes (Hospitalization)
  Sender: FDA-Public Use
  Company Number: US200606002847

PATIENT
  Age: 46 Year
  Sex: Male
  Weight: 63.5 kg

DRUGS (5)
  1. ZYPREXA [Suspect]
     Indication: SCHIZOPHRENIA
     Dosage: 5 MG, ORAL, 10 MG, ORAL, 15 MG, ORAL
     Dates: start: 20000530, end: 20060130
  2. ARIPIPRAZOLE [Concomitant]
  3. DEPAKOTE [Concomitant]
  4. COGENTIN [Concomitant]
  5. LASIX [Concomitant]

REACTIONS (2)
  - PANCREATITIS [None]
  - WEIGHT DECREASED [None]
